FAERS Safety Report 5911976-5 (Version None)
Quarter: 2008Q4

REPORT INFORMATION
  Report Type: 
  Country: None (occurrence: None)
  Receive Date: 20081008
  Receipt Date: 20081001
  Transmission Date: 20090506
  Serious: Yes (Other)
  Sender: FDA-Public Use
  Company Number: PHHY2008JP22560

PATIENT

DRUGS (4)
  1. CYCLOSPORINE [Suspect]
     Indication: RENAL TRANSPLANT
  2. METHYLPREDNISOLONE [Concomitant]
  3. MIZORIBINE [Concomitant]
  4. AZATHIOPRINE [Concomitant]

REACTIONS (12)
  - AMNIOTIC FLUID VOLUME DECREASED [None]
  - ANAEMIA [None]
  - BLOOD CREATININE INCREASED [None]
  - BLOOD PRESSURE INCREASED [None]
  - DIABETES MELLITUS [None]
  - DRUG EXPOSURE DURING PREGNANCY [None]
  - HYPERLIPIDAEMIA [None]
  - HYPERURICAEMIA [None]
  - PROTEIN URINE PRESENT [None]
  - THYROID FUNCTION TEST ABNORMAL [None]
  - UTERINE ATONY [None]
  - WEIGHT INCREASED [None]
